FAERS Safety Report 4375700-2 (Version None)
Quarter: 2004Q2

REPORT INFORMATION
  Report Type: 
  Country: None (occurrence: None)
  Receive Date: 20040607
  Receipt Date: 20040525
  Transmission Date: 20050107
  Serious: Yes (Hospitalization)
  Sender: FDA-Public Use
  Company Number: HQWYE120927MAY04

PATIENT
  Sex: Female

DRUGS (7)
  1. CHILDREN'S ADVIL [Suspect]
     Indication: PYREXIA
     Dosage: ORAL
     Route: 048
     Dates: start: 20040423, end: 20040424
  2. AMOXICILLIN [Suspect]
     Indication: ACUTE TONSILLITIS
     Dosage: ORAL
     Route: 048
     Dates: start: 20040425, end: 20040426
  3. AMOXICILLIN [Suspect]
     Indication: PHARYNGOLARYNGEAL PAIN
     Dosage: ORAL
     Route: 048
     Dates: start: 20040425, end: 20040426
  4. DOLIPRANE (PARACETAMOL) [Suspect]
     Indication: PYREXIA
     Dosage: ORAL
     Route: 048
     Dates: start: 20040426, end: 20040427
  5. HELICIDINE (HELICIDINE) [Suspect]
     Dates: start: 20040426, end: 20040427
  6. ZECLAR (CLARITHROMYCIN) [Suspect]
     Indication: ACUTE TONSILLITIS
     Dosage: ORAL
     Route: 048
     Dates: start: 20040426, end: 20040427
  7. ZECLAR (CLARITHROMYCIN) [Suspect]
     Indication: PHARYNGOLARYNGEAL PAIN
     Dosage: ORAL
     Route: 048
     Dates: start: 20040426, end: 20040427

REACTIONS (12)
  - ACUTE RESPIRATORY DISTRESS SYNDROME [None]
  - ANAEMIA [None]
  - ASPARTATE AMINOTRANSFERASE DECREASED [None]
  - C-REACTIVE PROTEIN INCREASED [None]
  - FACE OEDEMA [None]
  - GENERAL PHYSICAL HEALTH DETERIORATION [None]
  - HAEMODYNAMIC INSTABILITY [None]
  - MOANING [None]
  - PHARYNGOLARYNGEAL PAIN [None]
  - SOMNOLENCE [None]
  - THROMBOCYTOPENIA [None]
  - VARICELLA [None]
